FAERS Safety Report 19461539 (Version 1)
Quarter: 2021Q2

REPORT INFORMATION
  Report Type: Spontaneous
  Country: US (occurrence: US)
  Receive Date: 20210625
  Receipt Date: 20210625
  Transmission Date: 20210717
  Serious: No
  Sender: FDA-Public Use
  Company Number: US-GW PHARMA-202106USGW03033

PATIENT

DRUGS (1)
  1. EPIDIOLEX [Suspect]
     Active Substance: CANNABIDIOL
     Indication: EPILEPSY
     Dosage: 500 MILLIGRAM
     Route: 048
     Dates: start: 202105

REACTIONS (3)
  - Flatulence [Unknown]
  - Eructation [Unknown]
  - Reflux gastritis [Unknown]

NARRATIVE: CASE EVENT DATE: 2021
